FAERS Safety Report 25474550 (Version 1)
Quarter: 2025Q2

REPORT INFORMATION
  Report Type: Report from Study
  Country: GB (occurrence: GB)
  Receive Date: 20250624
  Receipt Date: 20250624
  Transmission Date: 20250717
  Serious: Yes (Other)
  Sender: IPSEN BIOPHARMACEUTICALS, INC.
  Company Number: GB-IPSEN Group, Research and Development-2025-14690

PATIENT
  Sex: Female

DRUGS (1)
  1. LANREOTIDE ACETATE [Suspect]
     Active Substance: LANREOTIDE ACETATE
     Indication: Product use in unapproved indication
     Route: 065
     Dates: start: 20250522

REACTIONS (1)
  - Diarrhoea [Recovered/Resolved]

NARRATIVE: CASE EVENT DATE: 20250523
